FAERS Safety Report 9503788 (Version 1)
Quarter: 2013Q1

REPORT INFORMATION
  Report Type: Spontaneous
  Country: US (occurrence: None)
  Receive Date: 20130225
  Receipt Date: 20130225
  Transmission Date: 20140127
  Serious: No
  Sender: FDA-Public Use
  Company Number: 367990

PATIENT
  Age: 68 Year
  Sex: Male

DRUGS (11)
  1. VICTOZA [Suspect]
     Indication: TYPE 2 DIABETES MELLITUS
     Route: 058
     Dates: start: 2010
  2. ASPIRIN (ACETYLSALICYLIC ACID) [Concomitant]
  3. VIAGRA (SILDENAFIL CITRATE) [Concomitant]
  4. NYSTATIN (NYSTATIN) [Concomitant]
  5. IRBESARTAN (IRBESARTAN) [Concomitant]
  6. METFORMIN HCL (METFORMIN HYDROCHLORIDE) [Concomitant]
  7. GLIMEPIRIDE (GLIMPEPIRIDE) [Concomitant]
  8. LOTRISONE (BETAMETHASONE DIPROPIONATE, CLOTRIMAZOLE) [Concomitant]
  9. QUININE SULFATE (QUININE SULFATE) [Concomitant]
  10. CELEBREX (CELECOXIB) [Concomitant]
  11. NEXIUM /01479302/ (ESOMEPRAZOLE MAGNESIUM) [Concomitant]

REACTIONS (2)
  - Device malfunction [None]
  - Blood glucose increased [None]
